FAERS Safety Report 16841966 (Version 10)
Quarter: 2022Q3

REPORT INFORMATION
  Report Type: Report from Study
  Country: NL (occurrence: NL)
  Receive Date: 20190923
  Receipt Date: 20220905
  Transmission Date: 20221027
  Serious: Yes (Hospitalization, Other)
  Sender: FDA-Public Use
  Company Number: PHHO2019NL009179

PATIENT
  Age: 65 Year
  Sex: Male
  Weight: 103 kg

DRUGS (20)
  1. CANAKINUMAB [Suspect]
     Active Substance: CANAKINUMAB
     Indication: Non-small cell lung cancer
     Dosage: 200 MG, Q3W
     Route: 058
     Dates: start: 20190304, end: 20190805
  2. PEMBROLIZUMAB [Suspect]
     Active Substance: PEMBROLIZUMAB
     Indication: Non-small cell lung cancer
     Dosage: 200 MG, Q3W
     Route: 042
     Dates: start: 20190304, end: 20190805
  3. UNSPECIFIED INGREDIENT [Suspect]
     Active Substance: UNSPECIFIED INGREDIENT
     Indication: Non-small cell lung cancer
     Dosage: NO TREATMENT
     Route: 065
  4. PEMETREXED DISODIUM [Suspect]
     Active Substance: PEMETREXED DISODIUM
     Indication: Non-small cell lung cancer
     Dosage: 1177 MG, Q3W
     Route: 042
     Dates: start: 20190304, end: 20190805
  5. PANTOPRAZOLE SODIUM [Concomitant]
     Active Substance: PANTOPRAZOLE SODIUM
     Indication: Prophylaxis
     Dosage: UNK
     Route: 065
     Dates: start: 20190301, end: 20191204
  6. VITAMIN B12 [Concomitant]
     Active Substance: CYANOCOBALAMIN
     Indication: Non-small cell lung cancer
     Dosage: UNK
     Route: 065
     Dates: start: 20190301
  7. DEXAMETHASONE [Concomitant]
     Active Substance: DEXAMETHASONE
     Indication: Metastases to central nervous system
     Dosage: UNK
     Route: 065
     Dates: start: 20190911, end: 20190916
  8. CARBOMER [Concomitant]
     Active Substance: CARBOMER
     Indication: Sjogren^s syndrome
     Dosage: UNK
     Route: 065
     Dates: start: 20190902
  9. AZARGA [Concomitant]
     Active Substance: BRINZOLAMIDE\TIMOLOL MALEATE
     Indication: Sjogren^s syndrome
     Dosage: UNK
     Route: 065
     Dates: start: 20190902
  10. MOVICOLON [Concomitant]
     Active Substance: POLYETHYLENE GLYCOL 3350\POTASSIUM CHLORIDE\SODIUM BICARBONATE\SODIUM CHLORIDE
     Indication: Prophylaxis
     Dosage: UNK
     Route: 065
     Dates: start: 20190312
  11. DEXTRAN [Concomitant]
     Active Substance: DEXTRAN
     Indication: Sjogren^s syndrome
     Dosage: UNK
     Route: 065
     Dates: start: 20190416
  12. FOLIC ACID [Concomitant]
     Active Substance: FOLIC ACID
     Indication: Non-small cell lung cancer
     Dosage: UNK
     Route: 065
     Dates: start: 20190301
  13. ACETAMINOPHEN [Concomitant]
     Active Substance: ACETAMINOPHEN
     Indication: Back pain
     Dosage: UNK
     Route: 065
     Dates: start: 20190301
  14. ACETAMINOPHEN [Concomitant]
     Active Substance: ACETAMINOPHEN
     Indication: Neck pain
  15. FENTANYL [Concomitant]
     Active Substance: FENTANYL
     Indication: Back pain
     Dosage: UNK
     Route: 065
     Dates: start: 20190301
  16. DIAZEPAM [Concomitant]
     Active Substance: DIAZEPAM
     Indication: Sleep disorder
     Dosage: UNK
     Route: 065
     Dates: start: 20190301
  17. LATANOPROST [Concomitant]
     Active Substance: LATANOPROST
     Indication: Glaucoma
     Dosage: UNK
     Route: 065
     Dates: start: 20190301
  18. TIMOLOL [Concomitant]
     Active Substance: TIMOLOL
     Indication: Glaucoma
     Dosage: UNK
     Route: 065
     Dates: start: 20190301
  19. RIVAROXABAN [Concomitant]
     Active Substance: RIVAROXABAN
     Indication: Pulmonary embolism
     Dosage: UNK
     Route: 065
     Dates: start: 20190320
  20. METOCLOPRAMIDE [Concomitant]
     Active Substance: METOCLOPRAMIDE
     Indication: Non-small cell lung cancer
     Dosage: UNK
     Route: 065
     Dates: start: 20190303

REACTIONS (1)
  - Fatigue [Recovered/Resolved with Sequelae]

NARRATIVE: CASE EVENT DATE: 20190911
